FAERS Safety Report 11729694 (Version 1)
Quarter: 2015Q4

REPORT INFORMATION
  Report Type: Spontaneous
  Country: BR (occurrence: BR)
  Receive Date: 20151111
  Receipt Date: 20151111
  Transmission Date: 20160304
  Serious: Yes (Hospitalization, Other)
  Sender: FDA-Public Use
  Company Number: BR-TORRENT-00003181

PATIENT
  Age: 81 Year
  Sex: Male
  Weight: 75 kg

DRUGS (12)
  1. ZOLPIDEM [Concomitant]
     Active Substance: ZOLPIDEM\ZOLPIDEM TARTRATE
     Indication: PRODUCT USED FOR UNKNOWN INDICATION
     Dosage: ZOLPIDEM 10 MG HALF OF A TABLET DAILY/ ORAL
     Route: 048
  2. COMBODART [Concomitant]
     Active Substance: DUTASTERIDE\TAMSULOSIN
     Indication: PROSTATIC DISORDER
     Dosage: TAMSULOSIN/DUTASTERIDE 0.4/0.5 MG ONCE DAILY/ ORAL
     Route: 048
     Dates: start: 2013
  3. EPEZ [Suspect]
     Active Substance: DONEPEZIL HYDROCHLORIDE
     Indication: DEMENTIA ALZHEIMER^S TYPE
     Dosage: ONCE DAILY/ ORAL
     Route: 048
     Dates: start: 2008, end: 2008
  4. FLUOXETINE [Concomitant]
     Active Substance: FLUOXETINE HYDROCHLORIDE
     Indication: DEPRESSION
     Dosage: ONCE DAILY/ ORAL
     Route: 048
     Dates: start: 2005
  5. ASPIRIN. [Concomitant]
     Active Substance: ASPIRIN
     Indication: CARDIOVASCULAR DISORDER
     Dosage: ONCE DAILY/ ORAL
     Route: 048
     Dates: start: 2005
  6. SIMVASTATIN. [Concomitant]
     Active Substance: SIMVASTATIN
     Indication: CARDIAC DISORDER
     Dosage: ONCE DAILY/ ORAL
     Route: 048
     Dates: start: 2005
  7. ALLOPURINOL. [Concomitant]
     Active Substance: ALLOPURINOL
     Indication: URINE URIC ACID ABNORMAL
     Dosage: ONCE DAILY/ ORAL
     Route: 048
     Dates: start: 2005
  8. GLIFAGE [Concomitant]
     Active Substance: METFORMIN HYDROCHLORIDE
     Indication: BLOOD GLUCOSE INCREASED
     Dosage: ONCE DAILY/ ORAL
     Route: 048
     Dates: start: 201507
  9. GARDENAL [Concomitant]
     Active Substance: PHENOBARBITAL
     Indication: SEIZURE
     Dosage: ONCE DAILY/ ORAL
     Route: 048
     Dates: start: 201507
  10. EPEZ [Suspect]
     Active Substance: DONEPEZIL HYDROCHLORIDE
     Indication: DEMENTIA ALZHEIMER^S TYPE
     Dosage: ONCE DAILY/ ORAL
     Route: 048
     Dates: start: 2008
  11. VESICARE [Concomitant]
     Active Substance: SOLIFENACIN SUCCINATE
     Indication: URINARY INCONTINENCE
     Dosage: ONCE DAILY/ ORAL
     Route: 048
     Dates: start: 2013
  12. LIPLESS [Concomitant]
     Active Substance: CIPROFIBRATE
     Indication: BLOOD CHOLESTEROL INCREASED
     Dosage: ONCE DAILY/ ORAL
     Route: 048
     Dates: start: 2005

REACTIONS (11)
  - Seizure [Recovered/Resolved]
  - Cholelithiasis [Not Recovered/Not Resolved]
  - Helicobacter gastritis [Not Recovered/Not Resolved]
  - Urinary incontinence [Not Recovered/Not Resolved]
  - Diarrhoea [Recovered/Resolved]
  - Cataract operation [Recovered/Resolved]
  - Spinal manipulation [Recovered/Resolved]
  - Pelvic inflammatory disease [Recovered/Resolved]
  - Heart rate decreased [Not Recovered/Not Resolved]
  - Muscle rigidity [Recovered/Resolved]
  - Blood glucose increased [Not Recovered/Not Resolved]

NARRATIVE: CASE EVENT DATE: 2008
